FAERS Safety Report 6141638-3 (Version None)
Quarter: 2009Q2

REPORT INFORMATION
  Report Type: 
  Country: None (occurrence: None)
  Receive Date: 20090402
  Receipt Date: 20090327
  Transmission Date: 20091009
  Serious: Yes (Other)
  Sender: FDA-Public Use
  Company Number: B0567236A

PATIENT
  Sex: Female

DRUGS (10)
  1. SERETIDE [Suspect]
     Indication: ASTHMA
     Dosage: 1PUFF TWICE PER DAY
     Route: 055
  2. VENTOLIN [Suspect]
     Indication: ASTHMA
     Dosage: 100MCG AS REQUIRED
     Route: 055
  3. ASPIRIN [Suspect]
     Indication: DRUG USE FOR UNKNOWN INDICATION
     Dosage: 75MG PER DAY
  4. NITROGLYCERIN [Suspect]
     Indication: PAIN
     Route: 048
  5. ISOSORBIDE MONONITRATE [Suspect]
     Indication: PAIN
     Dosage: 60MG PER DAY
     Route: 048
  6. MACROGOL [Suspect]
     Indication: CONSTIPATION
  7. PIZOTIFEN [Suspect]
     Indication: MIGRAINE
     Route: 065
  8. SIMVASTATIN [Suspect]
     Dosage: 40MG AT NIGHT
     Route: 065
  9. THYROXINE [Suspect]
     Indication: HYPOTHYROIDISM
     Dosage: 25MCG PER DAY
  10. TILDIEM LA [Suspect]
     Indication: HYPERTENSION
     Dosage: 200MG PER DAY

REACTIONS (5)
  - ANGINA PECTORIS [None]
  - CHEST DISCOMFORT [None]
  - CHEST PAIN [None]
  - COUGH [None]
  - WHEEZING [None]
